FAERS Safety Report 7115623-9 (Version None)
Quarter: 2010Q4

REPORT INFORMATION
  Report Type: 
  Country: None (occurrence: None)
  Receive Date: 20101122
  Receipt Date: 20101117
  Transmission Date: 20110411
  Serious: Yes (Death)
  Sender: FDA-Public Use
  Company Number: DE-JNJFOC-20101106404

PATIENT
  Sex: Male

DRUGS (3)
  1. REOPRO [Suspect]
     Indication: PERCUTANEOUS CORONARY INTERVENTION
     Route: 042
  2. ACETYLSALICYLIC ACID [Concomitant]
     Indication: ILL-DEFINED DISORDER
  3. HEPARIN [Concomitant]
     Indication: ILL-DEFINED DISORDER

REACTIONS (1)
  - HAEMORRHAGE INTRACRANIAL [None]
